FAERS Safety Report 7816500-8 (Version None)
Quarter: 2011Q4

REPORT INFORMATION
  Report Type: 
  Country: None (occurrence: None)
  Receive Date: 20111017
  Receipt Date: 20111003
  Transmission Date: 20120403
  Serious: Yes (Hospitalization, Other)
  Sender: FDA-Public Use
  Company Number: US-ELI_LILLY_AND_COMPANY-US201104002998

PATIENT
  Sex: Female

DRUGS (7)
  1. EVISTA [Suspect]
     Dosage: UNK, UNKNOWN
     Route: 065
  2. FORTEO [Suspect]
     Indication: OSTEOPOROSIS
     Dosage: 20 UG, QD
     Route: 065
     Dates: start: 20110404, end: 20110405
  3. CORTISONE ACETATE [Concomitant]
  4. FORTEO [Suspect]
     Dosage: 20 UG, QD
     Route: 065
  5. FORTEO [Suspect]
     Dosage: 20 UG, QD
     Route: 065
  6. FORTEO [Suspect]
     Dosage: 20 UG, QD
     Route: 065
  7. FORTEO [Suspect]
     Dosage: 20 UG, QD
     Route: 065
     Dates: start: 20110411

REACTIONS (18)
  - FALL [None]
  - SWELLING [None]
  - URINARY TRACT INFECTION [None]
  - ABDOMINAL DISCOMFORT [None]
  - MALAISE [None]
  - BLOOD CALCIUM INCREASED [None]
  - VOMITING [None]
  - DIZZINESS [None]
  - INTENTIONAL DRUG MISUSE [None]
  - CONTUSION [None]
  - BLOOD CHOLESTEROL INCREASED [None]
  - HEART RATE INCREASED [None]
  - NAUSEA [None]
  - FEMUR FRACTURE [None]
  - HIP FRACTURE [None]
  - RETCHING [None]
  - FATIGUE [None]
  - BLOOD TRIGLYCERIDES INCREASED [None]
